FAERS Safety Report 7739822-8 (Version None)
Quarter: 2011Q3

REPORT INFORMATION
  Report Type: 
  Country: None (occurrence: None)
  Receive Date: 20110909
  Receipt Date: 20110825
  Transmission Date: 20111222
  Serious: Yes (Hospitalization)
  Sender: FDA-Public Use
  Company Number: PHHY2011BE77902

PATIENT
  Sex: Male
  Weight: 74.6 kg

DRUGS (4)
  1. EVEROLIMUS [Suspect]
     Indication: RENAL TRANSPLANT
     Dosage: 2 MG, UNK
     Route: 048
     Dates: start: 20100628, end: 20100826
  2. MYFORTIC [Suspect]
     Indication: RENAL TRANSPLANT
     Dosage: 1440 MG, UNK
     Route: 048
     Dates: start: 20100305
  3. NEORAL [Suspect]
     Indication: RENAL TRANSPLANT
     Dosage: 300 MG, UNK
     Route: 048
     Dates: start: 20100705, end: 20100718
  4. MEDROL [Suspect]
     Indication: RENAL TRANSPLANT
     Dosage: 4 MG, UNK
     Route: 048
     Dates: start: 20100602

REACTIONS (2)
  - ENTERITIS [None]
  - RENAL FAILURE ACUTE [None]
